FAERS Safety Report 15538243 (Version 3)
Quarter: 2021Q4

REPORT INFORMATION
  Report Type: Spontaneous
  Country: FR (occurrence: FR)
  Receive Date: 20181022
  Receipt Date: 20211105
  Transmission Date: 20220303
  Serious: Yes (Hospitalization)
  Sender: FDA-Public Use
  Company Number: None

PATIENT
  Age: 45 Year
  Sex: Female

DRUGS (6)
  1. PREGABALIN [Interacting]
     Active Substance: PREGABALIN
     Indication: Depression
     Dosage: 600 MG, 1X/DAY
     Route: 048
     Dates: start: 20170428
  2. NARDIL [Interacting]
     Active Substance: PHENELZINE SULFATE
     Indication: Depression
     Dosage: NP
     Route: 048
     Dates: start: 20171023, end: 20171227
  3. NARDIL [Interacting]
     Active Substance: PHENELZINE SULFATE
     Dosage: 52.5 MG, 1X/DAY
     Route: 048
     Dates: start: 20171228, end: 20180105
  4. NARDIL [Interacting]
     Active Substance: PHENELZINE SULFATE
     Dosage: 45 MG, 1X/DAY
     Route: 048
     Dates: start: 20180106
  5. PRAMIPEXOLE DIHYDROCHLORIDE [Interacting]
     Active Substance: PRAMIPEXOLE DIHYDROCHLORIDE
     Indication: Depression
     Dosage: 2.1 MG, 1X/DAY
     Route: 048
     Dates: start: 20170825, end: 20180228
  6. TRIMEPRAZINE [Interacting]
     Active Substance: TRIMEPRAZINE
     Indication: Insomnia
     Dosage: 80 GTT, 1X/DAY
     Route: 048
     Dates: start: 20170608, end: 20180108

REACTIONS (6)
  - Sleep disorder [Recovered/Resolved]
  - Myoclonus [Recovering/Resolving]
  - Myalgia [Recovering/Resolving]
  - Vertigo [Recovered/Resolved]
  - Orthostatic hypotension [Recovered/Resolved]
  - Drug interaction [Unknown]

NARRATIVE: CASE EVENT DATE: 20171001
